FAERS Safety Report 5176900-4 (Version None)
Quarter: 2006Q4

REPORT INFORMATION
  Report Type: 
  Country: None (occurrence: None)
  Receive Date: 20061212
  Receipt Date: 20061212
  Transmission Date: 20070319
  Serious: No
  Sender: FDA-Public Use
  Company Number: None

PATIENT
  Sex: Female
  Weight: 57.6068 kg

DRUGS (1)
  1. SERTRALINE HCL [Suspect]
     Dosage: 200 MGM QHS PO
     Route: 048

REACTIONS (1)
  - CONDITION AGGRAVATED [None]
